FAERS Safety Report 20912199 (Version 1)
Quarter: 2022Q2

REPORT INFORMATION
  Report Type: Spontaneous
  Country: US (occurrence: US)
  Receive Date: 20220603
  Receipt Date: 20220603
  Transmission Date: 20220721
  Serious: Yes (Other)
  Sender: FDA-Public Use
  Company Number: US-BAYER-2022A077878

PATIENT
  Age: 37 Year
  Sex: Female

DRUGS (3)
  1. MIRENA [Suspect]
     Active Substance: LEVONORGESTREL
     Indication: Intra-uterine contraceptive device insertion
     Dosage: 20?G/DAY
     Route: 015
     Dates: start: 20201109
  2. OXBRYTA [Concomitant]
     Active Substance: VOXELOTOR
     Indication: Sickle cell disease
     Dosage: UNK
     Dates: end: 20220411
  3. OXBRYTA [Concomitant]
     Active Substance: VOXELOTOR
     Indication: Lymphoproliferative disorder

REACTIONS (4)
  - Anaphylactic shock [None]
  - Rash [None]
  - Urticaria [None]
  - Pruritus [None]
